FAERS Safety Report 15243629 (Version 1)
Quarter: 2018Q3

REPORT INFORMATION
  Report Type: Spontaneous
  Country: US (occurrence: US)
  Receive Date: 20180712
  Receipt Date: 20180712
  Transmission Date: 20181010
  Serious: Yes (Hospitalization)
  Sender: FDA-Public Use
  Company Number: None

PATIENT
  Age: 72 Year
  Sex: Female
  Weight: 70.65 kg

DRUGS (15)
  1. OLANZAPINE 15 MG [Concomitant]
  2. METOPROLOL TARTRATE 50 MG [Concomitant]
  3. ASPIRIN 81 MG EC TAB [Concomitant]
  4. ACETAMINOPHEN 325 MG [Concomitant]
     Active Substance: ACETAMINOPHEN
  5. APIXABAN 5 MG [Concomitant]
     Active Substance: APIXABAN
  6. VANCOMYCIN 25 MG/ML LIQD [Concomitant]
  7. FLUOXETINE 10 MG CAP [Concomitant]
  8. BUPROPION XL 150 MG [Concomitant]
     Active Substance: BUPROPION
  9. KLOR?CON 10 MEQ [Concomitant]
  10. LAMOTRIGINE 200 MG [Concomitant]
     Active Substance: LAMOTRIGINE
  11. DAPTOMYCIN. [Suspect]
     Active Substance: DAPTOMYCIN
     Indication: STAPHYLOCOCCAL INFECTION
     Route: 040
     Dates: start: 20180425, end: 20180428
  12. ALIGN 4 MG CAP [Concomitant]
  13. AMLODIPINE [Concomitant]
     Active Substance: AMLODIPINE BESYLATE
  14. OXYBUTYNIN 5 MG [Concomitant]
  15. CHOLECALCIFEROL 1000 UNIT TAB [Concomitant]

REACTIONS (5)
  - Liver function test increased [None]
  - Clostridium difficile infection [None]
  - Tendon rupture [None]
  - Rhabdomyolysis [None]
  - Acute kidney injury [None]

NARRATIVE: CASE EVENT DATE: 20180514
